FAERS Safety Report 15121897 (Version 2)
Quarter: 2019Q1

REPORT INFORMATION
  Report Type: Spontaneous
  Country: US (occurrence: US)
  Receive Date: 20180709
  Receipt Date: 20190208
  Transmission Date: 20190417
  Serious: Yes (Hospitalization)
  Sender: FDA-Public Use
  Company Number: US-OTSUKA-2018_018409

PATIENT
  Sex: Male

DRUGS (1)
  1. ABILIFY [Suspect]
     Active Substance: ARIPIPRAZOLE
     Indication: SCHIZOPHRENIA
     Dosage: UNK
     Route: 065
     Dates: start: 2006

REACTIONS (10)
  - Mental disorder [Unknown]
  - Obsessive-compulsive disorder [Recovered/Resolved]
  - Gambling disorder [Recovered/Resolved]
  - Shoplifting [Recovered/Resolved]
  - Dermatillomania [Recovered/Resolved]
  - Trichotillomania [Recovered/Resolved]
  - Economic problem [Unknown]
  - Compulsive shopping [Recovered/Resolved]
  - Theft [Recovered/Resolved]
  - Homeless [Unknown]

NARRATIVE: CASE EVENT DATE: 2006
